FAERS Safety Report 4414482-2 (Version None)
Quarter: 2004Q3

REPORT INFORMATION
  Report Type: 
  Country: None (occurrence: None)
  Receive Date: 20040702
  Receipt Date: 20040312
  Transmission Date: 20050211
  Serious: No
  Sender: FDA-Public Use
  Company Number: 361536

PATIENT
  Age: 36 Year
  Sex: Male
  Weight: 59 kg

DRUGS (2)
  1. KLONOPIN [Suspect]
     Dosage: 6 MG DAILY ORAL
     Route: 048
     Dates: start: 20040120, end: 20040125
  2. PAXIL [Concomitant]

REACTIONS (2)
  - DEPRESSION [None]
  - INSOMNIA [None]
